FAERS Safety Report 8440103-8 (Version None)
Quarter: 2012Q2

REPORT INFORMATION
  Report Type: 
  Country: None (occurrence: None)
  Receive Date: 20120615
  Receipt Date: 20120607
  Transmission Date: 20120825
  Serious: Yes (Other)
  Sender: FDA-Public Use
  Company Number: ES-ELI_LILLY_AND_COMPANY-ES201205006802

PATIENT
  Sex: Female

DRUGS (1)
  1. FORTEO [Suspect]
     Dosage: UNK UNK, UNKNOWN
     Route: 065

REACTIONS (3)
  - FEMUR FRACTURE [None]
  - MEDICAL DEVICE COMPLICATION [None]
  - BONE OPERATION [None]
